FAERS Safety Report 9961285 (Version 2)
Quarter: 2014Q1

REPORT INFORMATION
  Report Type: Report from Study
  Country: DE (occurrence: DE)
  Receive Date: 20140305
  Receipt Date: 20140305
  Transmission Date: 20141002
  Serious: Yes (Other)
  Sender: FDA-Public Use
  Company Number: PHHO2010DE16705

PATIENT
  Sex: 0

DRUGS (2)
  1. SOM230 [Suspect]
     Dosage: 1950 UG, BID
     Route: 058
     Dates: start: 20101102, end: 20101102
  2. MIRENA [Concomitant]
     Dosage: UNK
     Dates: start: 20100701

REACTIONS (8)
  - Arrhythmia supraventricular [Recovered/Resolved]
  - Supraventricular extrasystoles [Recovered/Resolved]
  - Atrial fibrillation [Recovered/Resolved]
  - Hypotension [Recovered/Resolved]
  - Dizziness [Recovered/Resolved]
  - Nausea [Recovered/Resolved]
  - Syncope [Recovered/Resolved]
  - Loss of consciousness [Recovered/Resolved]
